FAERS Safety Report 15642255 (Version 2)
Quarter: 2018Q4

REPORT INFORMATION
  Report Type: Spontaneous
  Country: BE (occurrence: BE)
  Receive Date: 20181121
  Receipt Date: 20181128
  Transmission Date: 20190205
  Serious: Yes (Other)
  Sender: FDA-Public Use
  Company Number: BE-STRIDES ARCOLAB LIMITED-2018SP009839

PATIENT
  Sex: Male

DRUGS (23)
  1. TACROLIMUS. [Suspect]
     Active Substance: TACROLIMUS
     Indication: STEM CELL TRANSPLANT
  2. GANCICLOVIR. [Suspect]
     Active Substance: GANCICLOVIR
     Indication: ADENOVIRUS INFECTION
     Dosage: UNK
     Route: 065
  3. CIDOFOVIR. [Suspect]
     Active Substance: CIDOFOVIR
     Indication: GRAFT VERSUS HOST DISEASE
  4. METHYLPREDNISOLONE. [Concomitant]
     Active Substance: METHYLPREDNISOLONE
     Indication: GRAFT VERSUS HOST DISEASE
  5. THIOTEPA. [Concomitant]
     Active Substance: THIOTEPA
     Indication: STEM CELL TRANSPLANT
     Dosage: 10 MG/KG ON PRE TRANSPLANT DAY FOUR
     Route: 065
  6. SIROLIMUS. [Concomitant]
     Active Substance: SIROLIMUS
     Indication: PROPHYLAXIS AGAINST GRAFT VERSUS HOST DISEASE
     Dosage: UNK
     Route: 065
  7. METHOTREXATE. [Concomitant]
     Active Substance: METHOTREXATE
     Indication: STEM CELL TRANSPLANT
  8. FILGRASTIM [Concomitant]
     Active Substance: FILGRASTIM
     Indication: STEM CELL TRANSPLANT
  9. PREDNISOLONE. [Concomitant]
     Active Substance: PREDNISOLONE
     Indication: PROPHYLAXIS AGAINST GRAFT VERSUS HOST DISEASE
     Dosage: UNK
     Route: 065
  10. METHYLPREDNISOLONE. [Concomitant]
     Active Substance: METHYLPREDNISOLONE
     Indication: ADENOVIRUS INFECTION
     Dosage: 2 MG/KG/DAY, UNK
     Route: 065
  11. ANTITHYMOCYTE IMMUNOGLOBULIN [Concomitant]
     Active Substance: THYMOCYTE IMMUNE GLOBULIN NOS
     Indication: STEM CELL TRANSPLANT
     Dosage: 2.5 MG/KG, FROM PRE TRANSPLANT DAY THREE TO DAY ONE
     Route: 065
  12. METHOTREXATE. [Concomitant]
     Active Substance: METHOTREXATE
     Indication: PROPHYLAXIS AGAINST GRAFT VERSUS HOST DISEASE
     Dosage: 15 MG/M2 ON DAY ONE AND 10 MG/M2 ON DAYS THREE, SIX, AND 11
     Route: 065
  13. FILGRASTIM [Concomitant]
     Active Substance: FILGRASTIM
     Indication: PROPHYLAXIS AGAINST GRAFT VERSUS HOST DISEASE
     Dosage: 300 ?G/D ON DAYS 16, 17, AND 19 POST-TRANSPLANT
     Route: 065
  14. TREOSULFAN [Concomitant]
     Active Substance: TREOSULFAN
     Indication: STEM CELL TRANSPLANT
     Dosage: 14 G/M2 PER DAY FROM PRE TRANSPLANT DAY SEVEN TO FIVE
     Route: 065
  15. CICLOSPORIN [Concomitant]
     Active Substance: CYCLOSPORINE
     Indication: PROPHYLAXIS AGAINST GRAFT VERSUS HOST DISEASE
     Dosage: UNK
     Route: 065
  16. MYCOPHENOLATE MOFETIL. [Suspect]
     Active Substance: MYCOPHENOLATE MOFETIL
     Indication: PROPHYLAXIS AGAINST GRAFT VERSUS HOST DISEASE
     Dosage: UNK, 3 ? 915 MG/D
     Route: 065
  17. MYCOPHENOLATE MOFETIL. [Suspect]
     Active Substance: MYCOPHENOLATE MOFETIL
     Indication: STEM CELL TRANSPLANT
  18. TACROLIMUS. [Suspect]
     Active Substance: TACROLIMUS
     Indication: PROPHYLAXIS AGAINST GRAFT VERSUS HOST DISEASE
     Dosage: 2X2 MG/DAY, TARGET TROUGH LEVELS 5?10 NG/ML
     Route: 065
  19. AZATHIOPRINE. [Suspect]
     Active Substance: AZATHIOPRINE
     Indication: STEM CELL TRANSPLANT
  20. CIDOFOVIR. [Suspect]
     Active Substance: CIDOFOVIR
     Indication: ADENOVIRUS INFECTION
     Dosage: UNK
     Route: 065
  21. AZATHIOPRINE. [Suspect]
     Active Substance: AZATHIOPRINE
     Indication: PROPHYLAXIS AGAINST GRAFT VERSUS HOST DISEASE
     Dosage: UNK
     Route: 065
  22. FLUDARABINE [Concomitant]
     Active Substance: FLUDARABINE PHOSPHATE
     Indication: STEM CELL TRANSPLANT
     Dosage: 30 MG/M2, PER DAY  PER DAY FROM PRE TRANSPLANT DAY SEVEN TO DAY THREE
     Route: 065
  23. ANTITHYMOCYTE IMMUNOGLOBULIN [Concomitant]
     Active Substance: THYMOCYTE IMMUNE GLOBULIN NOS
     Indication: PROPHYLAXIS AGAINST GRAFT VERSUS HOST DISEASE
     Dosage: UNK
     Route: 065

REACTIONS (14)
  - Altered state of consciousness [Unknown]
  - Epilepsy [Unknown]
  - Dysphagia [Unknown]
  - Facial paralysis [Unknown]
  - Dysarthria [Unknown]
  - Dysmetria [Unknown]
  - Hyperreflexia [Unknown]
  - Toxicity to various agents [Unknown]
  - Diplopia [Unknown]
  - Off label use [Unknown]
  - Hallucination [Unknown]
  - Ataxia [Unknown]
  - Drug ineffective for unapproved indication [Unknown]
  - Osmotic demyelination syndrome [Unknown]
